FAERS Safety Report 4770996-7 (Version None)
Quarter: 2005Q3

REPORT INFORMATION
  Report Type: 
  Country: None (occurrence: None)
  Receive Date: 20050914
  Receipt Date: 20050830
  Transmission Date: 20060218
  Serious: Yes (Life-Threatening, Hospitalization)
  Sender: FDA-Public Use
  Company Number: 12213

PATIENT
  Age: 58 Year
  Sex: Female
  Weight: 64 kg

DRUGS (8)
  1. METHOTREXATE [Suspect]
     Indication: BREAST CANCER
     Dosage: 85 MG PER_CYCLE IV
     Route: 042
     Dates: start: 20050629
  2. FLUOROURACIL [Suspect]
     Indication: BREAST CANCER
     Dosage: 1000 MG PER_CYCLE IV
     Route: 042
     Dates: start: 20050629
  3. CYCLOPHOSPHAMIDE [Suspect]
     Indication: BREAST CANCER
     Dosage: 1300 MG PER_CYCLE IV
     Route: 042
     Dates: start: 20050629
  4. LISINOPRIL [Concomitant]
  5. ASPIRIN [Concomitant]
  6. OMEPRAZOLE [Concomitant]
  7. PARACETAMOL [Concomitant]
  8. AMOXICILLIN AND CLAVULANATE POTASSIUM [Concomitant]

REACTIONS (3)
  - BODY TEMPERATURE INCREASED [None]
  - INFLUENZA LIKE ILLNESS [None]
  - NEUTROPENIC SEPSIS [None]
